FAERS Safety Report 8578489-6 (Version None)
Quarter: 2012Q3

REPORT INFORMATION
  Report Type: 
  Country: None (occurrence: None)
  Receive Date: 20120808
  Receipt Date: 20120731
  Transmission Date: 20120928
  Serious: Yes (Other)
  Sender: FDA-Public Use
  Company Number: US-US-EMD SERONO, INC.-7049179

PATIENT
  Sex: Male

DRUGS (1)
  1. REBIF [Suspect]
     Indication: PRODUCT USED FOR UNKNOWN INDICATION
     Route: 058
     Dates: start: 20050831, end: 20110902

REACTIONS (3)
  - OEDEMA PERIPHERAL [None]
  - CARDIAC DISORDER [None]
  - AUTOIMMUNE THROMBOCYTOPENIA [None]
